FAERS Safety Report 4396020-6 (Version None)
Quarter: 2004Q3

REPORT INFORMATION
  Report Type: 
  Country: None (occurrence: None)
  Receive Date: 20040707
  Receipt Date: 20040624
  Transmission Date: 20050211
  Serious: Yes (Hospitalization)
  Sender: FDA-Public Use
  Company Number: DE-2004-027106

PATIENT
  Age: 37 Year
  Sex: Female

DRUGS (1)
  1. YASMIN [Suspect]
     Indication: OVARIAN CYST
     Dosage: 20 UG/DAY, CONT, ORAL
     Route: 048

REACTIONS (2)
  - DISEASE RECURRENCE [None]
  - OVARIAN CYST [None]
